FAERS Safety Report 14967548 (Version 1)
Quarter: 2018Q2

REPORT INFORMATION
  Report Type: Report from Study
  Country: IL (occurrence: IL)
  Receive Date: 20180604
  Receipt Date: 20180604
  Transmission Date: 20180711
  Serious: Yes (Hospitalization, Other)
  Sender: FDA-Public Use
  Company Number: IL-TAKEDA-2018MPI006344

PATIENT
  Age: 61 Year
  Sex: Male

DRUGS (3)
  1. VELCADE [Suspect]
     Active Substance: BORTEZOMIB
     Indication: PLASMA CELL MYELOMA
     Dosage: 2 MG, 1/WEEK
     Route: 058
     Dates: start: 20111102
  2. DECADRON [Concomitant]
     Active Substance: DEXAMETHASONE
     Indication: PLASMA CELL MYELOMA
     Dosage: 20 MG, UNK
     Route: 042
     Dates: start: 20170220
  3. AREDIA [Concomitant]
     Active Substance: PAMIDRONATE DISODIUM

REACTIONS (1)
  - Bone cancer [Recovered/Resolved]

NARRATIVE: CASE EVENT DATE: 20180521
